FAERS Safety Report 8413526-0 (Version None)
Quarter: 2012Q2

REPORT INFORMATION
  Report Type: 
  Country: None (occurrence: None)
  Receive Date: 20120605
  Receipt Date: 20120530
  Transmission Date: 20120825
  Serious: Yes (Hospitalization, Congenital Anomaly)
  Sender: FDA-Public Use
  Company Number: US-GLAXOSMITHKLINE-A0979885A

PATIENT
  Sex: Female

DRUGS (2)
  1. PAXIL [Suspect]
     Indication: MAJOR DEPRESSION
     Dosage: 20MG PER DAY
     Route: 064
  2. ZOFRAN [Concomitant]

REACTIONS (9)
  - VENTRICULAR SEPTAL DEFECT [None]
  - LUNG DISORDER [None]
  - RENAL TUBULAR ACIDOSIS [None]
  - ATRIAL SEPTAL DEFECT [None]
  - HEART DISEASE CONGENITAL [None]
  - PULMONARY HYPERTENSION [None]
  - PATENT DUCTUS ARTERIOSUS [None]
  - FOETAL EXPOSURE DURING PREGNANCY [None]
  - STRABISMUS [None]
